FAERS Safety Report 9888382 (Version 1)
Quarter: 2014Q1

REPORT INFORMATION
  Report Type: Spontaneous
  Country: US (occurrence: None)
  Receive Date: 20140207
  Receipt Date: 20140207
  Transmission Date: 20141002
  Serious: Yes (Death)
  Sender: FDA-Public Use
  Company Number: SYM-2014-16749

PATIENT
  Age: 46 Year
  Sex: Male

DRUGS (6)
  1. SALICYLATE [Suspect]
     Route: 048
  2. CLONAZEPAM [Suspect]
     Route: 048
  3. LAMOTRIGINE [Suspect]
     Route: 048
  4. SERTRALINE [Suspect]
     Route: 048
  5. DOCUSATE [Suspect]
     Route: 048
  6. ETHANOL [Suspect]
     Route: 048

REACTIONS (2)
  - Completed suicide [None]
  - Toxicity to various agents [None]
